FAERS Safety Report 19941970 (Version 2)
Quarter: 2022Q1

REPORT INFORMATION
  Report Type: Spontaneous
  Country: FR (occurrence: FR)
  Receive Date: 20211012
  Receipt Date: 20220124
  Transmission Date: 20220423
  Serious: Yes (Death)
  Sender: FDA-Public Use
  Company Number: None

PATIENT
  Age: 39 Year
  Sex: Female
  Weight: 103 kg

DRUGS (5)
  1. CLOZAPINE [Suspect]
     Active Substance: CLOZAPINE
     Indication: Agitation
     Dosage: 100 MG, SCORED TABLET, CHANGE TO 150/150 ON 19/10 THEN TO 150/200 ON 20/10
     Route: 048
     Dates: start: 20200708
  2. CYAMEMAZINE [Suspect]
     Active Substance: CYAMEMAZINE
     Indication: Product used for unknown indication
     Dosage: 40 MG / ML, CHANGE FROM 80 GTTS/D TO 220 ON 19/10 AND 270 ON 20/10
     Route: 048
     Dates: start: 20200609
  3. LORAZEPAM [Suspect]
     Active Substance: LORAZEPAM
     Indication: Anxiety
     Dosage: STRENGTH:1MG, SCORED TABLET, FROM 10/09 TO 19/10, TREATMENT SUSPENDED THEN 2.5 MG/D SINCE 20/10
     Route: 048
     Dates: start: 20201020
  4. VALPROMIDE [Suspect]
     Active Substance: VALPROMIDE
     Indication: Product used for unknown indication
     Dosage: 300 MG, GASTRO-RESISTANT FILM-COATED TABLET, 600 MORNING, 300 NOON, 600 EVENING
     Route: 048
     Dates: start: 20200802
  5. TERALITHE [Suspect]
     Active Substance: LITHIUM CARBONATE
     Indication: Bipolar disorder
     Dosage: 400 MG, PROLONGED-RELEASE SCORED TABLET, 400MG / DAY UNTIL 09/04 THEN 800 MG / DAY
     Route: 048
     Dates: start: 202003

REACTIONS (2)
  - Sudden death [Fatal]
  - Electrocardiogram QT prolonged [Fatal]

NARRATIVE: CASE EVENT DATE: 20201021
